FAERS Safety Report 15469582 (Version 1)
Quarter: 2018Q4

REPORT INFORMATION
  Report Type: Spontaneous
  Country: US (occurrence: US)
  Receive Date: 20181005
  Receipt Date: 20181005
  Transmission Date: 20190205
  Serious: No
  Sender: FDA-Public Use
  Company Number: US-BAUSCH-BL-2018-025530

PATIENT
  Sex: Female

DRUGS (2)
  1. LIBRIUM [Suspect]
     Active Substance: CHLORDIAZEPOXIDE HYDROCHLORIDE
     Indication: PRODUCT USED FOR UNKNOWN INDICATION
     Route: 065
  2. ABILIFY MAINTENA [Suspect]
     Active Substance: ARIPIPRAZOLE
     Indication: PRODUCT USED FOR UNKNOWN INDICATION
     Route: 065

REACTIONS (8)
  - Anxiety [Unknown]
  - Imprisonment [Recovered/Resolved]
  - Therapeutic response unexpected [Unknown]
  - Back pain [Unknown]
  - Feeling abnormal [Unknown]
  - Therapy cessation [Recovered/Resolved]
  - Arthritis [Unknown]
  - Arthralgia [Unknown]
